FAERS Safety Report 6365342-1 (Version None)
Quarter: 2009Q3

REPORT INFORMATION
  Report Type: 
  Country: None (occurrence: None)
  Receive Date: 20090919
  Receipt Date: 20090808
  Transmission Date: 20100115
  Serious: No
  Sender: FDA-Public Use
  Company Number: US-ABBOTT-09P-163-0591226-00

PATIENT
  Sex: Female
  Weight: 99.88 kg

DRUGS (6)
  1. HUMIRA [Suspect]
     Indication: RHEUMATOID ARTHRITIS
     Route: 058
     Dates: start: 20070101
  2. FOLIC ACID [Concomitant]
     Indication: RHEUMATOID ARTHRITIS
  3. CADUET [Concomitant]
     Indication: HYPERTENSION
  4. CADUET [Concomitant]
     Indication: BLOOD CHOLESTEROL INCREASED
  5. ALTACE [Concomitant]
     Indication: HYPERTENSION
  6. PLAVIX [Concomitant]
     Indication: RHEUMATOID ARTHRITIS

REACTIONS (1)
  - WRONG TECHNIQUE IN DRUG USAGE PROCESS [None]
